FAERS Safety Report 7387163-3 (Version None)
Quarter: 2011Q1

REPORT INFORMATION
  Report Type: 
  Country: None (occurrence: None)
  Receive Date: 20110331
  Receipt Date: 20110323
  Transmission Date: 20110831
  Serious: Yes (Hospitalization)
  Sender: FDA-Public Use
  Company Number: A0920759A

PATIENT
  Age: 19 Year
  Sex: Female
  Weight: 75.3 kg

DRUGS (1)
  1. FLOLAN [Suspect]
     Indication: PULMONARY ARTERIAL HYPERTENSION
     Route: 042
     Dates: start: 20090510

REACTIONS (3)
  - RESPIRATORY DISORDER [None]
  - INFECTION [None]
  - DYSPNOEA [None]
